FAERS Safety Report 4549902-6 (Version None)
Quarter: 2004Q4

REPORT INFORMATION
  Report Type: 
  Country: None (occurrence: None)
  Receive Date: 20041228
  Receipt Date: 20040929
  Transmission Date: 20050328
  Serious: No
  Sender: FDA-Public Use
  Company Number: WAES 0409USA02667

PATIENT
  Age: 62 Year
  Sex: Male
  Weight: 93.8946 kg

DRUGS (1)
  1. INVANZ [Suspect]
     Indication: INFECTION
     Dosage: 1.0 GM/DAILY/IM
     Route: 030
     Dates: start: 20040927, end: 20040927

REACTIONS (1)
  - BLOOD CREATINE PHOSPHOKINASE INCREASED [None]
